FAERS Safety Report 21508474 (Version 2)
Quarter: 2022Q4

REPORT INFORMATION
  Report Type: Spontaneous
  Country: BR (occurrence: BR)
  Receive Date: 20221026
  Receipt Date: 20221110
  Transmission Date: 20230113
  Serious: Yes (Other)
  Sender: FDA-Public Use
  Company Number: BR-ARBOR PHARMACEUTICALS, LLC-BR-2022ARB002719

PATIENT
  Sex: Male

DRUGS (4)
  1. TRIPTODUR [Suspect]
     Active Substance: TRIPTORELIN
     Indication: Prostate cancer
     Dosage: 1 APPLICATION OF 3.75MG EVERY 28 DAYS (STRENGTH: 3.75 MG) (3.75 MG,28 D)
     Route: 030
     Dates: start: 20221003
  2. TRIPTODUR [Suspect]
     Active Substance: TRIPTORELIN
  3. TRIPTODUR [Suspect]
     Active Substance: TRIPTORELIN
  4. LOSARTAN [Concomitant]
     Active Substance: LOSARTAN
     Indication: Hypertension
     Dosage: ONE TABLET ONCE A DAY, SINCE 2020. (1 DOSAGE FORMS, 1 D)
     Dates: start: 2020

REACTIONS (3)
  - Haematochezia [Recovered/Resolved]
  - Urinary tract infection [Not Recovered/Not Resolved]
  - Diarrhoea [Not Recovered/Not Resolved]

NARRATIVE: CASE EVENT DATE: 20220101
